FAERS Safety Report 16739024 (Version 1)
Quarter: 2019Q3

REPORT INFORMATION
  Report Type: Spontaneous
  Country: TR (occurrence: TR)
  Receive Date: 20190826
  Receipt Date: 20190826
  Transmission Date: 20191005
  Serious: Yes (Other)
  Sender: FDA-Public Use
  Company Number: TR-ROCHE-2352285

PATIENT
  Age: 59 Year
  Sex: Male
  Weight: 64 kg

DRUGS (7)
  1. RETINOL [Concomitant]
     Active Substance: RETINOL
     Route: 065
  2. RITUXIMAB. [Suspect]
     Active Substance: RITUXIMAB
     Indication: DIFFUSE LARGE B-CELL LYMPHOMA
     Dosage: 2 CYCLES
     Route: 065
     Dates: start: 20190318, end: 20190409
  3. IFOSFAMIDE. [Concomitant]
     Active Substance: IFOSFAMIDE
     Route: 065
     Dates: start: 20190318, end: 20190409
  4. CARBOPLATINE [Concomitant]
     Active Substance: CARBOPLATIN
     Route: 065
     Dates: start: 20190318, end: 20190409
  5. GLIFOR [METFORMIN HYDROCHLORIDE] [Concomitant]
     Route: 065
  6. ETOPOSIDE. [Concomitant]
     Active Substance: ETOPOSIDE
     Route: 065
     Dates: start: 20190318, end: 20190409
  7. MESNA. [Concomitant]
     Active Substance: MESNA
     Route: 065
     Dates: start: 20190318, end: 20190409

REACTIONS (2)
  - Therapy partial responder [Unknown]
  - B-cell lymphoma recurrent [Unknown]
